FAERS Safety Report 15353808 (Version 1)
Quarter: 2018Q3

REPORT INFORMATION
  Report Type: Spontaneous
  Country: FR (occurrence: FR)
  Receive Date: 20180905
  Receipt Date: 20180905
  Transmission Date: 20181010
  Serious: Yes (Hospitalization)
  Sender: FDA-Public Use
  Company Number: FR-ELI_LILLY_AND_COMPANY-FR201808013614

PATIENT
  Age: 70 Year
  Sex: Male
  Weight: 79 kg

DRUGS (3)
  1. CYMBALTA [Suspect]
     Active Substance: DULOXETINE HYDROCHLORIDE
     Indication: DEPRESSION
     Dosage: 1 DF, DAILY
     Route: 048
     Dates: start: 20171011, end: 201803
  2. ANDROCUR [Concomitant]
     Active Substance: CYPROTERONE ACETATE
     Indication: SEXUALLY INAPPROPRIATE BEHAVIOUR
     Dosage: 100 MG, DAILY
     Route: 048
     Dates: start: 20180209, end: 20180322
  3. LOXAPINE. [Suspect]
     Active Substance: LOXAPINE
     Indication: SEXUALLY INAPPROPRIATE BEHAVIOUR
     Dosage: 125 GTT, DAILY
     Route: 048
     Dates: start: 20180115, end: 20180322

REACTIONS (2)
  - Transaminases increased [Recovered/Resolved]
  - Parkinsonism [Recovered/Resolved]

NARRATIVE: CASE EVENT DATE: 201803
